FAERS Safety Report 13616413 (Version 2)
Quarter: 2021Q1

REPORT INFORMATION
  Report Type: Spontaneous
  Country: US (occurrence: US)
  Receive Date: 20170606
  Receipt Date: 20210115
  Transmission Date: 20210419
  Serious: No
  Sender: FDA-Public Use
  Company Number: US-SA-2016SA173775

PATIENT
  Sex: Female

DRUGS (2)
  1. LANTUS SOLOSTAR [Suspect]
     Active Substance: INSULIN GLARGINE
     Indication: TYPE 2 DIABETES MELLITUS
     Dosage: 20?40 IU, QD
     Route: 058
  2. LANTUS SOLOSTAR [Suspect]
     Active Substance: INSULIN GLARGINE
     Dosage: 25 IU, ONCE AT NIGHT
     Route: 058
     Dates: start: 202011

REACTIONS (5)
  - Incorrect dose administered by device [Unknown]
  - Device operational issue [Unknown]
  - Lethargy [Unknown]
  - Blood glucose increased [Unknown]
  - Hypoglycaemia [Recovering/Resolving]
